FAERS Safety Report 17584604 (Version 1)
Quarter: 2020Q1

REPORT INFORMATION
  Report Type: Spontaneous
  Country: US (occurrence: US)
  Receive Date: 20200323
  Receipt Date: 20200323
  Transmission Date: 20200409
  Serious: No
  Sender: FDA-Public Use
  Company Number: None

PATIENT
  Age: 75 Year
  Sex: Male

DRUGS (3)
  1. SIMVASTATIN. [Concomitant]
     Active Substance: SIMVASTATIN
  2. TACROLIMUS. [Concomitant]
     Active Substance: TACROLIMUS
  3. MYCOPHENOLATE MOF CAP 250MG [Suspect]
     Active Substance: MYCOPHENOLATE MOFETIL
     Dosage: OTHER
     Route: 048
     Dates: start: 200903

REACTIONS (2)
  - Muscular weakness [None]
  - Fall [None]

NARRATIVE: CASE EVENT DATE: 20200220
